FAERS Safety Report 8416354-5 (Version None)
Quarter: 2012Q2

REPORT INFORMATION
  Report Type: 
  Country: None (occurrence: None)
  Receive Date: 20120323
  Receipt Date: 20110805
  Transmission Date: 20120825
  Serious: Yes (Other)
  Sender: FDA-Public Use
  Company Number: 163-21880-11080944

PATIENT
  Age: 69 Year
  Sex: Female

DRUGS (9)
  1. REVLIMID [Suspect]
     Indication: MULTIPLE MYELOMA
     Dosage: 10 MG, X28, PO
     Route: 048
     Dates: start: 20110325
  2. CAVAN-X (VITAMIN B12 AND FOLIC ACID) [Concomitant]
  3. HYDRALAZINE HCL [Concomitant]
  4. WARFARIN SODIUM [Concomitant]
  5. ATENOLOL [Concomitant]
  6. ZOMETA [Concomitant]
  7. OSCAL D3 (CALCIUM CARBONATE) [Concomitant]
  8. DIOVAN HCT (CO-DIOVAN) [Concomitant]
  9. GABAPENTIN [Concomitant]

REACTIONS (1)
  - THROMBOSIS [None]
